FAERS Safety Report 17449559 (Version 1)
Quarter: 2020Q1

REPORT INFORMATION
  Report Type: Spontaneous
  Country: FR (occurrence: FR)
  Receive Date: 20200224
  Receipt Date: 20200224
  Transmission Date: 20200409
  Serious: Yes (Other)
  Sender: FDA-Public Use
  Company Number: FR-ZYDUS-037974

PATIENT
  Age: 26 Year
  Sex: Female
  Weight: 49 kg

DRUGS (18)
  1. DIAZEPAM. [Suspect]
     Active Substance: DIAZEPAM
     Indication: DEPRESSION
     Route: 048
     Dates: start: 20190225
  2. BEVITINE [Concomitant]
     Active Substance: THIAMINE HYDROCHLORIDE
     Route: 048
     Dates: start: 20190220, end: 20190224
  3. PAROXETINE. [Suspect]
     Active Substance: PAROXETINE
     Indication: DEPRESSION
     Route: 048
     Dates: start: 20190208, end: 20190212
  4. NOZINAN [Concomitant]
     Active Substance: LEVOMEPROMAZINE
     Dates: start: 20190214, end: 20190215
  5. FOSFOPHARM [Concomitant]
     Route: 048
     Dates: start: 20190407
  6. PHOSPHONEUROS [Concomitant]
     Active Substance: CALCIUM PHOSPHATE, DIBASIC, ANHYDROUS\MAGNESIUM GLYCEROPHOSPHATE\PHOSPHORIC ACID\SODIUM PHOSPHATE, DIBASIC
     Route: 048
     Dates: start: 20190209, end: 20190211
  7. IMOVANE [Concomitant]
     Active Substance: ZOPICLONE
     Dosage: COATED TABLET
     Route: 048
     Dates: start: 20190208, end: 20190228
  8. SERTRALINE [Suspect]
     Active Substance: SERTRALINE HYDROCHLORIDE
     Indication: DEPRESSION
     Route: 048
     Dates: start: 20190215
  9. BEROCCA [Concomitant]
     Active Substance: VITAMINS
     Route: 048
     Dates: start: 20190220, end: 20190301
  10. DIFFU K [Concomitant]
     Active Substance: POTASSIUM CHLORIDE
     Route: 048
     Dates: start: 20190221, end: 20190301
  11. BRINTELLIX [Suspect]
     Active Substance: VORTIOXETINE HYDROBROMIDE
     Indication: DEPRESSION
     Route: 048
     Dates: start: 20190403, end: 20190405
  12. TERCIAN [Suspect]
     Active Substance: CYAMEMAZINE
     Indication: DEPRESSION
     Route: 048
     Dates: start: 20190404
  13. BACTRIM [Concomitant]
     Active Substance: SULFAMETHOXAZOLE\TRIMETHOPRIM
     Dosage: COMPRESSED
     Route: 048
     Dates: start: 20190407, end: 20190414
  14. MOVICOL [Concomitant]
     Active Substance: POLYETHYLENE GLYCOL 3350\POTASSIUM CHLORIDE\SODIUM BICARBONATE\SODIUM CHLORIDE
     Dates: start: 20190220, end: 20190226
  15. MAG 2 [Concomitant]
     Active Substance: MAGNESIUM
     Route: 048
     Dates: start: 20190220, end: 20190226
  16. FOLIC ACID. [Concomitant]
     Active Substance: FOLIC ACID
     Route: 048
     Dates: start: 20190220, end: 20190225
  17. TEMESTA [Concomitant]
     Route: 048
     Dates: start: 20190207, end: 20190225
  18. SERESTA [Concomitant]
     Active Substance: OXAZEPAM
     Dates: start: 20190404

REACTIONS (1)
  - Urinary retention [Not Recovered/Not Resolved]

NARRATIVE: CASE EVENT DATE: 20190209
